FAERS Safety Report 7969621-3 (Version None)
Quarter: 2011Q4

REPORT INFORMATION
  Report Type: 
  Country: None (occurrence: None)
  Receive Date: 20111212
  Receipt Date: 20111205
  Transmission Date: 20120403
  Serious: Yes (Other)
  Sender: FDA-Public Use
  Company Number: US-PFIZER INC-2011291899

PATIENT
  Sex: Female
  Weight: 129 kg

DRUGS (6)
  1. ATENOLOL [Concomitant]
     Indication: HYPERTENSION
     Dosage: UNK
  2. RANITIDINE HYDROCHLORIDE [Concomitant]
     Indication: GALLBLADDER DISORDER
     Dosage: UNK
  3. PROVERA [Suspect]
     Indication: UTERINE CANCER
     Dosage: 40 MG, 1X/DAY 4 TABLETS OF 10MG
     Route: 048
     Dates: start: 20091201
  4. METFORMIN HCL [Suspect]
     Indication: DIABETES MELLITUS
     Dosage: 500 MG, 2X/DAY
     Route: 048
     Dates: start: 20110201
  5. IBUPROFEN [Suspect]
     Indication: PAIN
     Dosage: 200 MG, 2X/DAY
     Route: 048
  6. LISINOPRIL [Concomitant]
     Indication: HYPERTENSION
     Dosage: UNK

REACTIONS (4)
  - BLOOD PRESSURE INADEQUATELY CONTROLLED [None]
  - WEIGHT DECREASED [None]
  - PROTEIN URINE PRESENT [None]
  - BLOOD GLUCOSE INCREASED [None]
